FAERS Safety Report 10693585 (Version 1)
Quarter: 2015Q1

REPORT INFORMATION
  Report Type: Spontaneous
  Country: BR (occurrence: BR)
  Receive Date: 20150106
  Receipt Date: 20150106
  Transmission Date: 20150721
  Serious: Yes (Death)
  Sender: FDA-Public Use
  Company Number: PHHY2015BR000812

PATIENT
  Sex: Male

DRUGS (1)
  1. FORASEQ [Suspect]
     Active Substance: BUDESONIDE\FORMOTEROL FUMARATE
     Indication: RESPIRATORY DISORDER
     Route: 065

REACTIONS (2)
  - Infarction [Fatal]
  - Product use issue [Unknown]

NARRATIVE: CASE EVENT DATE: 2007
